FAERS Safety Report 6895626-X (Version None)
Quarter: 2010Q3

REPORT INFORMATION
  Report Type: 
  Country: None (occurrence: None)
  Receive Date: 20100730
  Receipt Date: 20100730
  Transmission Date: 20110219
  Serious: No
  Sender: FDA-Public Use
  Company Number: None

PATIENT
  Age: 45 Year
  Sex: Female

DRUGS (1)
  1. SUMATRIPTAN SUCCINATE [Suspect]
     Indication: MIGRAINE
     Dosage: 1 TABLET -100 MG- ONSET OF HEADACHE PO
     Route: 048
     Dates: start: 20100601, end: 20100621

REACTIONS (2)
  - GASTROINTESTINAL DISORDER [None]
  - PRODUCT QUALITY ISSUE [None]
